FAERS Safety Report 6453772-9 (Version None)
Quarter: 2009Q4

REPORT INFORMATION
  Report Type: 
  Country: None (occurrence: None)
  Receive Date: 20091123
  Receipt Date: 20091123
  Transmission Date: 20100525
  Serious: No
  Sender: FDA-Public Use
  Company Number: None

PATIENT
  Age: 30 Year
  Sex: Female
  Weight: 56.6996 kg

DRUGS (2)
  1. METOCLOPRAMIDE [Suspect]
     Indication: NAUSEA
     Dosage: 1 TABLET EVERY 6 HOURS PO AS NEEDED DUE TO NAUESA.
     Route: 048
     Dates: start: 20081009, end: 20081231
  2. METOCLOPRAMIDE [Suspect]
     Indication: VOMITING
     Dosage: 1 TABLET EVERY 6 HOURS PO AS NEEDED DUE TO NAUESA.
     Route: 048
     Dates: start: 20081009, end: 20081231

REACTIONS (1)
  - MUSCLE SPASMS [None]
